FAERS Safety Report 10572133 (Version 2)
Quarter: 2014Q4

REPORT INFORMATION
  Report Type: Spontaneous
  Country: DE (occurrence: DE)
  Receive Date: 20141107
  Receipt Date: 20141107
  Transmission Date: 20150529
  Serious: Yes (Other)
  Sender: FDA-Public Use
  Company Number: DE-ASTRAZENECA-2014SE81751

PATIENT
  Age: 994 Month
  Sex: Male
  Weight: 77 kg

DRUGS (3)
  1. BRILIQUE [Suspect]
     Active Substance: TICAGRELOR
     Indication: ACUTE MYOCARDIAL INFARCTION
     Route: 048
     Dates: start: 20130424, end: 20131224
  2. BRILIQUE [Suspect]
     Active Substance: TICAGRELOR
     Indication: VASCULAR GRAFT
     Route: 048
     Dates: start: 20130424, end: 20131224
  3. BRILIQUE [Suspect]
     Active Substance: TICAGRELOR
     Indication: CORONARY ARTERY DISEASE
     Route: 048
     Dates: start: 20130424, end: 20131224

REACTIONS (6)
  - Fall [Unknown]
  - Haemorrhagic anaemia [Recovered/Resolved]
  - Cystitis haemorrhagic [Unknown]
  - Haematoma [Recovered/Resolved]
  - Wound haemorrhage [Recovered/Resolved]
  - Gastrointestinal haemorrhage [Recovered/Resolved]

NARRATIVE: CASE EVENT DATE: 201309
